FAERS Safety Report 7620084 (Version 2)
Quarter: 2013Q2

REPORT INFORMATION
  Report Type: Report from Study
  Country: DE (occurrence: DE)
  Receive Date: 20101007
  Receipt Date: 20130604
  Transmission Date: 20140414
  Serious: Yes (Death, Life-Threatening, Hospitalization)
  Sender: FDA-Public Use
  Company Number: DE-BRISTOL-MYERS SQUIBB COMPANY-15203904

PATIENT
  Age: 73 Year
  Sex: Male

DRUGS (9)
  1. CETUXIMAB [Suspect]
     Indication: COLORECTAL CANCER
     Dosage: CETUXIMAB 5MG/ML;RECENT INF ON 14JUL10;
     Route: 042
     Dates: start: 20100210, end: 20100714
  2. OXALIPLATIN [Suspect]
     Indication: COLORECTAL CANCER
     Dosage: RECENT INF ON 02JUN10
     Route: 042
     Dates: start: 20100210, end: 20100602
  3. 5-FLUOROURACIL [Suspect]
     Indication: COLORECTAL CANCER
     Dosage: RECENT INF ON 14JUL10
     Route: 042
     Dates: start: 20100210, end: 20100714
  4. FOLINIC ACID [Suspect]
     Indication: COLORECTAL CANCER
     Dosage: RECENT INF ON 14JUL10
     Route: 042
     Dates: start: 20100210, end: 20100714
  5. METFORMIN [Concomitant]
     Dosage: 1 DF - 500 UNITS NOS
  6. RAMIPRIL/HYDROCHLOROTHIAZIDE [Concomitant]
     Dosage: 1 DF - 5/25 UNITS NOS
  7. RAMIPRIL [Concomitant]
     Dosage: 1 DF - 5 UNITS NOS
     Dates: start: 20100324
  8. ROCEPHIN [Concomitant]
     Dates: start: 20100720
  9. TAZOBAC [Concomitant]
     Dates: start: 20100721

REACTIONS (2)
  - Pneumonia [Fatal]
  - Acute myocardial infarction [Fatal]
